FAERS Safety Report 5092168-1 (Version None)
Quarter: 2006Q3

REPORT INFORMATION
  Report Type: 
  Country: None (occurrence: None)
  Receive Date: 20060825
  Receipt Date: 20060811
  Transmission Date: 20061208
  Serious: Yes (Other)
  Sender: FDA-Public Use
  Company Number: 2006S1006849

PATIENT
  Age: 65 Year
  Sex: Female

DRUGS (3)
  1. HYDROXYCHLOROQUINE SULFATE [Suspect]
     Indication: RHEUMATOID ARTHRITIS
     Dosage: 200  MG; BID; PO
     Route: 048
     Dates: start: 20060711, end: 20060723
  2. ALPRAZOLAM (CON.) [Concomitant]
  3. IBUPROFEN (CON.) [Concomitant]

REACTIONS (1)
  - HYPERSENSITIVITY [None]
